FAERS Safety Report 10344666 (Version 1)
Quarter: 2014Q3

REPORT INFORMATION
  Report Type: Spontaneous
  Country: GB (occurrence: None)
  Receive Date: 20140724
  Receipt Date: 20140724
  Transmission Date: 20150326
  Serious: Yes (Other)
  Sender: FDA-Public Use
  Company Number: AUR-APL-2014-07847

PATIENT
  Age: 76 Year
  Sex: Male

DRUGS (1)
  1. AMLODIPINE [Suspect]
     Active Substance: AMLODIPINE BESYLATE
     Indication: BLOOD PRESSURE INCREASED
     Dosage: ONCE A DAY

REACTIONS (5)
  - Arthralgia [None]
  - Myalgia [None]
  - Muscle disorder [None]
  - Muscular weakness [None]
  - Arthropathy [None]
